FAERS Safety Report 17545546 (Version 1)
Quarter: 2020Q1

REPORT INFORMATION
  Report Type: Spontaneous
  Country: US (occurrence: US)
  Receive Date: 20200307
  Receipt Date: 20200307
  Transmission Date: 20200409
  Serious: No
  Sender: FDA-Public Use
  Company Number: None

PATIENT
  Age: 64 Year
  Sex: Male

DRUGS (1)
  1. THALOMID [Suspect]
     Active Substance: THALIDOMIDE
     Indication: PLASMA CELL MYELOMA
     Route: 048
     Dates: start: 20190509, end: 20190515

REACTIONS (3)
  - Tumour lysis syndrome [None]
  - Pancytopenia [None]
  - Febrile neutropenia [None]

NARRATIVE: CASE EVENT DATE: 20190515
